FAERS Safety Report 19129824 (Version 1)
Quarter: 2021Q2

REPORT INFORMATION
  Report Type: Spontaneous
  Country: JP (occurrence: JP)
  Receive Date: 20210413
  Receipt Date: 20210413
  Transmission Date: 20210717
  Serious: Yes (Hospitalization, Other)
  Sender: FDA-Public Use
  Company Number: JP-PFIZER INC-2021277038

PATIENT
  Age: 8 Decade
  Sex: Female
  Weight: 39 kg

DRUGS (8)
  1. FASLODEX [Concomitant]
     Active Substance: FULVESTRANT
     Indication: BREAST CANCER METASTATIC
     Dosage: 500 MG, 1X/DAY
     Route: 030
     Dates: start: 20180810, end: 20201203
  2. IBRANCE [Suspect]
     Active Substance: PALBOCICLIB
     Dosage: 100 MG, 1XDAY, CYCLIC
     Route: 048
     Dates: start: 20180928, end: 2018
  3. EDIROL [Concomitant]
     Active Substance: ELDECALCITOL
     Dosage: 0.75 UG, 1X/DAY
     Route: 048
     Dates: start: 20150220
  4. PRALIA [Concomitant]
     Active Substance: DENOSUMAB
     Dosage: 60 MG, 1X/DAY
     Route: 058
     Dates: start: 20180223
  5. IBRANCE [Suspect]
     Active Substance: PALBOCICLIB
     Indication: BREAST CANCER METASTATIC
     Dosage: 125 MG, 1X/DAY, CYCLIC
     Route: 048
     Dates: start: 20180810, end: 2018
  6. DENOTAS [Concomitant]
     Active Substance: CALCIUM CARBONATE\CHOLECALCIFEROL\MAGNESIUM CARBONATE
     Dosage: UNK, 1X/DAY
     Route: 048
     Dates: start: 20180223
  7. IBRANCE [Suspect]
     Active Substance: PALBOCICLIB
     Dosage: 75 MG, 1X/DAY, CYCLIC
     Route: 048
     Dates: start: 20181109, end: 20190318
  8. IBRANCE [Suspect]
     Active Substance: PALBOCICLIB
     Dosage: 75 MG, 1X/DAY, CYCLIC
     Route: 048
     Dates: start: 20190323, end: 20190531

REACTIONS (5)
  - Food poisoning [Unknown]
  - Diarrhoea [Unknown]
  - Interstitial lung disease [Recovering/Resolving]
  - Neutrophil count decreased [Recovered/Resolved]
  - Abdominal pain [Unknown]

NARRATIVE: CASE EVENT DATE: 2018
